FAERS Safety Report 4467852-0 (Version None)
Quarter: 2004Q4

REPORT INFORMATION
  Report Type: 
  Country: None (occurrence: None)
  Receive Date: 20041004
  Receipt Date: 20040927
  Transmission Date: 20050328
  Serious: Yes (Hospitalization)
  Sender: FDA-Public Use
  Company Number: US013885

PATIENT
  Age: 64 Year
  Sex: Female

DRUGS (2)
  1. PROVIGIL [Suspect]
     Indication: NARCOLEPSY
     Dosage: 200 MG BID ORAL
     Route: 048
  2. GEMCITABINE [Concomitant]

REACTIONS (1)
  - MYOCARDIAL INFARCTION [None]
